FAERS Safety Report 9868039 (Version 1)
Quarter: 2014Q1

REPORT INFORMATION
  Report Type: Spontaneous
  Country: US (occurrence: None)
  Receive Date: 20140203
  Receipt Date: 20140203
  Transmission Date: 20141002
  Serious: Yes (Other)
  Sender: FDA-Public Use
  Company Number: None

PATIENT
  Age: 62 Year
  Sex: Female

DRUGS (2)
  1. LORATADINE [Suspect]
     Indication: ANAPHYLACTIC REACTION
     Route: 048
     Dates: start: 20140202, end: 20140202
  2. LORATADINE [Suspect]
     Indication: PROPHYLAXIS
     Route: 048
     Dates: start: 20140202, end: 20140202

REACTIONS (2)
  - Drug ineffective [None]
  - Urticaria [None]
